FAERS Safety Report 6179778-5 (Version None)
Quarter: 2009Q2

REPORT INFORMATION
  Report Type: 
  Country: None (occurrence: None)
  Receive Date: 20090505
  Receipt Date: 20090424
  Transmission Date: 20091009
  Serious: Yes (Other)
  Sender: FDA-Public Use
  Company Number: US-PFIZER INC-2009203813

PATIENT
  Sex: Female
  Weight: 59 kg

DRUGS (5)
  1. PROVERA [Suspect]
     Indication: HORMONE REPLACEMENT THERAPY
     Dosage: 2.5 MG, UNK
     Route: 048
     Dates: start: 19940101, end: 19980101
  2. PREMARIN [Suspect]
     Indication: HORMONE REPLACEMENT THERAPY
     Dosage: 0.625 MG, UNK
     Dates: start: 19940101, end: 19980101
  3. PREMPRO [Suspect]
     Indication: HORMONE REPLACEMENT THERAPY
     Dosage: 0.625/25G
     Dates: start: 19980101, end: 20010101
  4. PREFEST [Suspect]
     Indication: HORMONE REPLACEMENT THERAPY
     Dosage: UNK
     Dates: start: 20001001, end: 20011001
  5. ORTHO-EST [Suspect]
     Indication: HORMONE REPLACEMENT THERAPY
     Dosage: UNK
     Dates: start: 20011001, end: 20011201

REACTIONS (4)
  - BONE NEOPLASM MALIGNANT [None]
  - BREAST CANCER [None]
  - NEOPLASM MALIGNANT [None]
  - SKIN CANCER [None]
